FAERS Safety Report 7981105-5 (Version None)
Quarter: 2011Q4

REPORT INFORMATION
  Report Type: 
  Country: None (occurrence: None)
  Receive Date: 20111212
  Receipt Date: 20111129
  Transmission Date: 20120403
  Serious: Yes (Death, Life-Threatening, Hospitalization)
  Sender: FDA-Public Use
  Company Number: 2011MA017221

PATIENT
  Sex: Male
  Weight: 69.4003 kg

DRUGS (25)
  1. CEPHALEXIN [Concomitant]
  2. HYDROCODONE BITARTRATE AND ACETAMINOPHEN [Concomitant]
  3. PLAVIX [Concomitant]
  4. WARFARIN SODIUM [Concomitant]
  5. ASPIRIN [Concomitant]
  6. HEPARIN [Concomitant]
  7. CARVEDILOL [Concomitant]
  8. FUROSEMIDE [Concomitant]
  9. CAPTOPRIL [Concomitant]
  10. MORPHINE [Concomitant]
  11. NITRATES [Concomitant]
  12. SPIRONOLACTONE [Concomitant]
  13. LEVAQUIN [Concomitant]
  14. POTASSIUM [Concomitant]
  15. TRAMADOL HCL [Concomitant]
  16. NITROGLYCERIN [Concomitant]
  17. COREG [Concomitant]
  18. LASIX [Concomitant]
  19. ISOSORBIDE DINITRATE [Concomitant]
  20. DIGOXIN [Suspect]
     Indication: CARDIAC FAILURE CONGESTIVE
     Dosage: 0.125 MG;EOD;PO
     Route: 048
     Dates: start: 20070119, end: 20080305
  21. DIGOXIN [Suspect]
     Indication: SUPRAVENTRICULAR TACHYCARDIA
     Dosage: 0.125 MG;EOD;PO
     Route: 048
     Dates: start: 20070119, end: 20080305
  22. DIGOXIN [Suspect]
     Indication: ACUTE MYOCARDIAL INFARCTION
     Dosage: 0.125 MG;EOD;PO
     Route: 048
     Dates: start: 20070119, end: 20080305
  23. ALDACTONE [Concomitant]
  24. ZOCOR [Concomitant]
  25. SIMVASTATIN [Concomitant]

REACTIONS (9)
  - DIZZINESS [None]
  - CARDIAC DISORDER [None]
  - ANXIETY [None]
  - UNEVALUABLE EVENT [None]
  - MULTIPLE INJURIES [None]
  - ECONOMIC PROBLEM [None]
  - CARDIAC FAILURE CONGESTIVE [None]
  - VOMITING [None]
  - HYPOTENSION [None]
